FAERS Safety Report 5018270-8 (Version None)
Quarter: 2006Q2

REPORT INFORMATION
  Report Type: 
  Country: None (occurrence: None)
  Receive Date: 20060530
  Receipt Date: 20060515
  Transmission Date: 20061013
  Serious: Yes (Life-Threatening, Other)
  Sender: FDA-Public Use
  Company Number: 2006064707

PATIENT
  Sex: Male
  Weight: 20 kg

DRUGS (1)
  1. SOLU-MEDRONE [Suspect]
     Indication: ILL-DEFINED DISORDER
     Dosage: 200 MG, INTRAVENOUS
     Route: 042

REACTIONS (4)
  - ANAPHYLACTIC REACTION [None]
  - BRONCHOSPASM [None]
  - HYPOTENSION [None]
  - METABOLIC ACIDOSIS [None]
